FAERS Safety Report 15250376 (Version 1)
Quarter: 2018Q3

REPORT INFORMATION
  Report Type: Spontaneous
  Country: US (occurrence: US)
  Receive Date: 20180807
  Receipt Date: 20180807
  Transmission Date: 20181010
  Serious: Yes (Hospitalization, Other)
  Sender: FDA-Public Use
  Company Number: US-SA-2018SA210118

PATIENT
  Age: 75 Year
  Sex: Male

DRUGS (3)
  1. HUMALOG [Interacting]
     Active Substance: INSULIN LISPRO
  2. LANTUS [Suspect]
     Active Substance: INSULIN GLARGINE
     Indication: TYPE 2 DIABETES MELLITUS
     Dosage: 45UNITS AM/PM
  3. NOVOLOG [Interacting]
     Active Substance: INSULIN ASPART

REACTIONS (7)
  - Vision blurred [Unknown]
  - Memory impairment [Unknown]
  - Apparent death [Unknown]
  - Drug interaction [Unknown]
  - Blood glucose fluctuation [Unknown]
  - Catatonia [Unknown]
  - Coma [Unknown]
